FAERS Safety Report 16648907 (Version 2)
Quarter: 2019Q3

REPORT INFORMATION
  Report Type: Report from Study
  Country: US (occurrence: US)
  Receive Date: 20190730
  Receipt Date: 20190808
  Transmission Date: 20191004
  Serious: Yes (Other)
  Sender: FDA-Public Use
  Company Number: PHEH2019US031329

PATIENT
  Sex: Male

DRUGS (1)
  1. ENTRESTO [Suspect]
     Active Substance: SACUBITRIL\VALSARTAN
     Indication: PRODUCT USED FOR UNKNOWN INDICATION
     Route: 048

REACTIONS (9)
  - Ejection fraction decreased [Unknown]
  - Sleep disorder [Unknown]
  - Fatigue [Unknown]
  - Dyspnoea [Unknown]
  - Hypoacusis [Not Recovered/Not Resolved]
  - Cough [Unknown]
  - Depression [Unknown]
  - Feeling abnormal [Unknown]
  - Productive cough [Unknown]
